FAERS Safety Report 9663979 (Version 1)
Quarter: 2013Q4

REPORT INFORMATION
  Report Type: Spontaneous
  Country: US (occurrence: None)
  Receive Date: 20131030
  Receipt Date: 20131030
  Transmission Date: 20140711
  Serious: Yes (Death)
  Sender: FDA-Public Use
  Company Number: None

PATIENT
  Age: 65 Year
  Sex: Female
  Weight: 79.38 kg

DRUGS (1)
  1. METHADONE 10MG [Suspect]
     Indication: PAIN
     Dosage: 2 PILLS TWICE DAILY TAKEN BY MOUTH
     Route: 048

REACTIONS (2)
  - Wrong drug administered [None]
  - Unevaluable event [None]
